APPROVED DRUG PRODUCT: HALOPERIDOL DECANOATE
Active Ingredient: HALOPERIDOL DECANOATE
Strength: EQ 100MG BASE/ML
Dosage Form/Route: INJECTABLE;INJECTION
Application: A076463 | Product #002
Applicant: SANDOZ INC
Approved: Jun 24, 2005 | RLD: No | RS: No | Type: DISCN